FAERS Safety Report 6520419-2 (Version None)
Quarter: 2009Q4

REPORT INFORMATION
  Report Type: 
  Country: None (occurrence: None)
  Receive Date: 20091229
  Receipt Date: 20091224
  Transmission Date: 20100525
  Serious: Yes (Hospitalization)
  Sender: FDA-Public Use
  Company Number: A0836667A

PATIENT
  Age: 38 Year
  Sex: Female

DRUGS (1)
  1. ALLI [Suspect]
     Indication: WEIGHT LOSS DIET
     Route: 048
     Dates: start: 20090501, end: 20090901

REACTIONS (8)
  - CHOLECYSTECTOMY [None]
  - CHOLELITHIASIS [None]
  - EATING DISORDER [None]
  - GALLBLADDER DISORDER [None]
  - GALLBLADDER PAIN [None]
  - MALAISE [None]
  - PANCREATITIS [None]
  - VOMITING [None]
